FAERS Safety Report 14158078 (Version 6)
Quarter: 2018Q4

REPORT INFORMATION
  Report Type: Spontaneous
  Country: BG (occurrence: BG)
  Receive Date: 20171105
  Receipt Date: 20181218
  Transmission Date: 20190204
  Serious: Yes (Hospitalization, Other)
  Sender: FDA-Public Use
  Company Number: BG-ROCHE-2018245

PATIENT
  Age: 59 Year
  Sex: Female
  Weight: 62 kg

DRUGS (16)
  1. BRILIQUE [Concomitant]
     Active Substance: TICAGRELOR
     Indication: HYPERTENSION
     Route: 065
  2. COPRENESSA [Concomitant]
     Indication: HYPERTENSION
     Route: 065
  3. BUTO-ASMA [Concomitant]
     Indication: ASTHMA
     Route: 055
  4. ATORIS [Concomitant]
     Active Substance: ATORVASTATIN CALCIUM
     Indication: HYPERTENSION
     Route: 048
  5. VERAPAMIL [Concomitant]
     Active Substance: VERAPAMIL HYDROCHLORIDE
     Indication: PRODUCT USED FOR UNKNOWN INDICATION
     Route: 048
  6. FOSTER (BULGARIA) [Concomitant]
     Indication: ASTHMA
     Route: 055
  7. DEXOFEN (BULGARIA) [Concomitant]
     Indication: PRODUCT USED FOR UNKNOWN INDICATION
     Route: 065
  8. XOLAIR [Suspect]
     Active Substance: OMALIZUMAB
     Indication: ASTHMA
     Route: 058
     Dates: start: 201709
  9. CLOPIDOGREL [Concomitant]
     Active Substance: CLOPIDOGREL BISULFATE
     Indication: PRODUCT USED FOR UNKNOWN INDICATION
     Route: 065
  10. PRESTARIUM [Concomitant]
     Active Substance: PERINDOPRIL
     Indication: PRODUCT USED FOR UNKNOWN INDICATION
     Dosage: 5 MG, UNK
     Route: 065
  11. BRILIQUE [Concomitant]
     Active Substance: TICAGRELOR
     Indication: MYOCARDIAL ISCHAEMIA
     Route: 048
  12. ROMAZIC [Concomitant]
     Active Substance: ROSUVASTATIN CALCIUM
     Indication: PRODUCT USED FOR UNKNOWN INDICATION
     Dosage: 10 MG, UNK
     Route: 065
  13. SINTROM [Concomitant]
     Active Substance: ACENOCOUMAROL
     Indication: PRODUCT USED FOR UNKNOWN INDICATION
     Dosage: UNK
     Route: 048
     Dates: start: 2004, end: 2017
  14. COPRENESSA [Concomitant]
     Indication: MYOCARDIAL ISCHAEMIA
     Route: 048
  15. ATORIS [Concomitant]
     Active Substance: ATORVASTATIN CALCIUM
     Indication: MYOCARDIAL ISCHAEMIA
     Route: 065
  16. PROPAFENONE HYDROCHLORIDE. [Concomitant]
     Active Substance: PROPAFENONE HYDROCHLORIDE

REACTIONS (9)
  - Syncope [Unknown]
  - Loss of consciousness [Unknown]
  - Angina pectoris [Unknown]
  - Dyspnoea [Unknown]
  - Nausea [Unknown]
  - Plaque shift [Unknown]
  - Pallor [Unknown]
  - Stenosis [Unknown]
  - Acute myocardial infarction [Recovered/Resolved]

NARRATIVE: CASE EVENT DATE: 20171026
